FAERS Safety Report 4911955-0 (Version None)
Quarter: 2006Q1

REPORT INFORMATION
  Report Type: 
  Country: None (occurrence: None)
  Receive Date: 20060213
  Receipt Date: 20060131
  Transmission Date: 20060701
  Serious: Yes (Hospitalization, Other)
  Sender: FDA-Public Use
  Company Number: 2005161362

PATIENT
  Age: 8 Year
  Sex: Male
  Weight: 47 kg

DRUGS (7)
  1. SOLU-MEDROL [Suspect]
     Indication: JUVENILE ARTHRITIS
     Dosage: 900 MG (900 MG, 1 IN 1 D), INTRAVENOUS
     Route: 042
     Dates: start: 20040315
  2. NEORAL [Suspect]
     Indication: JUVENILE ARTHRITIS
     Dosage: 150 MG (75 MG, 2 IN 1 D), ORAL
     Route: 048
     Dates: start: 20040721
  3. PREDNISOLONE [Suspect]
     Indication: JUVENILE ARTHRITIS
     Dosage: 10 MG
     Dates: start: 20040306, end: 20050601
  4. METHOTREXATE [Concomitant]
  5. BRUFEN (IBUPROFEN) [Concomitant]
  6. CIMETIDINE [Concomitant]
  7. ALFAROL (ALFACALCIDOL) [Concomitant]

REACTIONS (13)
  - ANAPHYLACTIC SHOCK [None]
  - ARTHRALGIA [None]
  - CYANOSIS [None]
  - HEADACHE [None]
  - HYPERTENSION [None]
  - HYPERTHERMIA [None]
  - NYSTAGMUS [None]
  - RESPIRATORY ARREST [None]
  - REVERSIBLE POSTERIOR LEUKOENCEPHALOPATHY SYNDROME [None]
  - SOMNOLENCE [None]
  - TONIC CONVULSION [None]
  - TREMOR [None]
  - VOMITING [None]
